FAERS Safety Report 5877996-4 (Version None)
Quarter: 2008Q3

REPORT INFORMATION
  Report Type: 
  Country: None (occurrence: None)
  Receive Date: 20080911
  Receipt Date: 20080902
  Transmission Date: 20090109
  Serious: Yes (Hospitalization)
  Sender: FDA-Public Use
  Company Number: US-ABBOTT-08P-163-0473524-00

PATIENT
  Sex: Female
  Weight: 81.266 kg

DRUGS (2)
  1. HUMIRA [Suspect]
     Indication: RHEUMATOID ARTHRITIS
     Route: 058
     Dates: start: 20080501
  2. ACETAMINOPHEN [Concomitant]
     Indication: ARTHRALGIA
     Dosage: 2 TABLETS ONCE AT BEDTIME
     Route: 048

REACTIONS (4)
  - ARTHRALGIA [None]
  - COLITIS [None]
  - OEDEMA [None]
  - WHITE BLOOD CELL COUNT INCREASED [None]
